FAERS Safety Report 12409521 (Version 3)
Quarter: 2017Q2

REPORT INFORMATION
  Report Type: Spontaneous
  Country: US (occurrence: US)
  Receive Date: 20160526
  Receipt Date: 20170525
  Transmission Date: 20170830
  Serious: No
  Sender: FDA-Public Use
  Company Number: US-IMPAX LABORATORIES, INC-2016-IPXL-00285

PATIENT
  Sex: Male

DRUGS (4)
  1. HYDROCORTISONE. [Suspect]
     Active Substance: HYDROCORTISONE
     Indication: FATIGUE
     Dosage: 2.5 MG MORNING AND EVENING
     Route: 048
     Dates: start: 2016, end: 2016
  2. HYDROCORTISONE. [Suspect]
     Active Substance: HYDROCORTISONE
     Indication: CORTISOL DECREASED
     Dosage: 10 MG EVERY MORNING AFTER DROPPING ONE OF THE THREE 5 MG TABLETS
     Route: 048
     Dates: start: 2015
  3. HYDROCORTISONE. [Suspect]
     Active Substance: HYDROCORTISONE
     Dosage: 2.5 MG IN MORNING AND IN EARLY AFTERNOON
     Route: 048
     Dates: start: 2016, end: 2016
  4. HYDROCORTISONE. [Suspect]
     Active Substance: HYDROCORTISONE
     Dosage: 2.5 MG, DAILY
     Route: 048
     Dates: start: 20160327, end: 20160328

REACTIONS (6)
  - Heart rate increased [Recovered/Resolved]
  - Treatment noncompliance [Unknown]
  - Feeling abnormal [Recovered/Resolved]
  - Chest discomfort [Recovered/Resolved]
  - Gait disturbance [Recovered/Resolved]
  - Insomnia [Recovered/Resolved]

NARRATIVE: CASE EVENT DATE: 2015
